FAERS Safety Report 12467773 (Version 1)
Quarter: 2016Q2

REPORT INFORMATION
  Report Type: Spontaneous
  Country: GB (occurrence: GB)
  Receive Date: 20160615
  Receipt Date: 20160615
  Transmission Date: 20160815
  Serious: Yes (Hospitalization)
  Sender: FDA-Public Use
  Company Number: GB-GLAXOSMITHKLINE-GB2016083498

PATIENT
  Age: 69 Year
  Sex: Female

DRUGS (12)
  1. MEBEVERINE [Concomitant]
     Active Substance: MEBEVERINE
     Dosage: 135 MG, TID, PATIENT FEELS THIS DOESN^T WORK FOR HER AS SHE IS STILL BLOATED
  2. OMEPRAZOLE. [Concomitant]
     Active Substance: OMEPRAZOLE
     Dosage: 20 MG, BID
  3. HYABAK [Concomitant]
     Dosage: BOTH EYES 4-5 TIMES A DAY
  4. DAPAGLIFLOZIN [Concomitant]
     Active Substance: DAPAGLIFLOZIN
     Dosage: 10 MG, QD, MORNING
  5. AMITRIPTYLINE [Concomitant]
     Active Substance: AMITRIPTYLINE
     Dosage: 30 MG, QD, 2 -3 A NIGHT, PATIENT TAKES 3 REGULARLY
  6. PREGABALIN. [Concomitant]
     Active Substance: PREGABALIN
     Dosage: , PATIENT CAN TAKE EXTRA ONE IN A DAY IF NEEDED150 MG, BID
  7. TERBINAFINE. [Suspect]
     Active Substance: TERBINAFINE
     Indication: ONYCHOMYCOSIS
     Dosage: 250 MG, QD, MORNING
     Route: 048
     Dates: start: 201602, end: 20160525
  8. COCODAMOL [Concomitant]
     Active Substance: ACETAMINOPHEN\CODEINE PHOSPHATE
     Dosage: 2 DF, UNK, 8/500. FOUR TIMES DAILY AS NECESSARY, RARELY.
  9. ATORVASTATIN [Concomitant]
     Active Substance: ATORVASTATIN
     Dosage: 40 MG, QD, NOCTE
  10. DOCUSATE [Concomitant]
     Active Substance: DOCUSATE
     Dosage: 200 MG, UNK, NOCTE. PATIENT TAKES REGULARLY
  11. METFORMIN [Concomitant]
     Active Substance: METFORMIN HYDROCHLORIDE
     Dosage: 1 G, BID
  12. TOLTERODINE [Concomitant]
     Active Substance: TOLTERODINE
     Dosage: 2 MG, BID

REACTIONS (5)
  - Liver function test abnormal [Recovering/Resolving]
  - Malaise [Recovering/Resolving]
  - Abdominal pain upper [Recovering/Resolving]
  - Decreased appetite [Recovering/Resolving]
  - Myalgia [Recovering/Resolving]

NARRATIVE: CASE EVENT DATE: 201603
